FAERS Safety Report 9341347 (Version 1)
Quarter: 2013Q2

REPORT INFORMATION
  Report Type: Spontaneous
  Country: US (occurrence: US)
  Receive Date: 20130611
  Receipt Date: 20130611
  Transmission Date: 20140414
  Serious: No
  Sender: FDA-Public Use
  Company Number: US-009507513-1306USA000808

PATIENT
  Age: 83 Year
  Sex: Female

DRUGS (1)
  1. ZOCOR [Suspect]
     Indication: BLOOD CHOLESTEROL
     Dosage: 20 MG, QD
     Route: 048

REACTIONS (1)
  - Constipation [Not Recovered/Not Resolved]
